FAERS Safety Report 6931958-4 (Version None)
Quarter: 2010Q3

REPORT INFORMATION
  Report Type: 
  Country: None (occurrence: None)
  Receive Date: 20100819
  Receipt Date: 20100813
  Transmission Date: 20110219
  Serious: Yes (Hospitalization)
  Sender: FDA-Public Use
  Company Number: FR-BRISTOL-MYERS SQUIBB COMPANY-15242555

PATIENT
  Age: 77 Year
  Sex: Male

DRUGS (5)
  1. APROVEL FILM-COATED/RM TABS 300 MG [Suspect]
     Indication: HYPERTENSION
     Route: 048
  2. CORDARONE [Suspect]
     Indication: ATRIAL FIBRILLATION
     Route: 048
     Dates: start: 19960101, end: 20090501
  3. ATORVASTATIN CALCIUM [Concomitant]
     Dosage: FILM-COATED TABLET
     Route: 048
     Dates: start: 20090101
  4. ZYLORIC [Concomitant]
     Indication: GOUT
     Route: 048
     Dates: start: 20090101
  5. AMLODIPINE [Concomitant]
     Indication: HYPERTENSION
     Route: 048
     Dates: start: 20090101

REACTIONS (1)
  - INTERSTITIAL LUNG DISEASE [None]
